FAERS Safety Report 24328534 (Version 3)
Quarter: 2024Q4

REPORT INFORMATION
  Report Type: Spontaneous
  Country: US (occurrence: US)
  Receive Date: 20240917
  Receipt Date: 20241216
  Transmission Date: 20250115
  Serious: No
  Sender: BRISTOL-MYERS SQUIBB COMPANY
  Company Number: US-BRISTOL-MYERS SQUIBB COMPANY-2024-147772

PATIENT
  Age: 75 Year
  Sex: Female
  Weight: 75.3 kg

DRUGS (2)
  1. POMALYST [Suspect]
     Active Substance: POMALIDOMIDE
     Indication: Plasma cell myeloma
     Route: 048
  2. POMALYST [Suspect]
     Active Substance: POMALIDOMIDE
     Indication: Plasmacytoma
     Route: 048

REACTIONS (5)
  - Dizziness [Recovering/Resolving]
  - Myalgia [Recovering/Resolving]
  - Tremor [Not Recovered/Not Resolved]
  - Cough [Unknown]
  - Dyspnoea [Unknown]
